FAERS Safety Report 12093817 (Version 1)
Quarter: 2016Q1

REPORT INFORMATION
  Report Type: Spontaneous
  Country: GB (occurrence: GB)
  Receive Date: 20160219
  Receipt Date: 20160219
  Transmission Date: 20160526
  Serious: Yes (Other)
  Sender: FDA-Public Use
  Company Number: GB-TEVA-634563ACC

PATIENT
  Age: 26 Year
  Sex: Female
  Weight: 57.6 kg

DRUGS (1)
  1. CIPROFLOXACIN. [Suspect]
     Active Substance: CIPROFLOXACIN
     Indication: KIDNEY INFECTION
     Dosage: 1 GRAM DAILY; 2 X 500MG
     Route: 048
     Dates: start: 20160125, end: 20160201

REACTIONS (14)
  - Nightmare [Recovered/Resolved with Sequelae]
  - Anxiety [Recovering/Resolving]
  - Confusional state [Recovering/Resolving]
  - Malaise [Recovered/Resolved]
  - Amnesia [Recovering/Resolving]
  - Somnolence [Recovered/Resolved]
  - Abdominal pain upper [Not Recovered/Not Resolved]
  - Memory impairment [Recovering/Resolving]
  - Hallucinations, mixed [Recovered/Resolved]
  - Pyrexia [Recovered/Resolved with Sequelae]
  - Back pain [Not Recovered/Not Resolved]
  - Myalgia [Not Recovered/Not Resolved]
  - Muscle spasms [Recovering/Resolving]
  - Vision blurred [Recovered/Resolved with Sequelae]

NARRATIVE: CASE EVENT DATE: 20160125
